FAERS Safety Report 5752444-3 (Version None)
Quarter: 2008Q2

REPORT INFORMATION
  Report Type: 
  Country: None (occurrence: None)
  Receive Date: 20080529
  Receipt Date: 20080523
  Transmission Date: 20081010
  Serious: Yes (Life-Threatening)
  Sender: FDA-Public Use
  Company Number: B0522694A

PATIENT
  Age: 62 Year
  Sex: Female
  Weight: 95 kg

DRUGS (3)
  1. AVANDIA [Suspect]
     Dosage: 4MG TWICE PER DAY
     Route: 048
     Dates: start: 20060612, end: 20080405
  2. GLIMEPIRIDE [Concomitant]
     Dosage: 2MG PER DAY
     Route: 048
     Dates: start: 20060305, end: 20080405
  3. LOSEC MUPS [Concomitant]
     Dosage: 10MG TWICE PER DAY
     Route: 048
     Dates: start: 19980303

REACTIONS (7)
  - DEAFNESS UNILATERAL [None]
  - DIZZINESS [None]
  - EYE IRRITATION [None]
  - FATIGUE [None]
  - PALPITATIONS [None]
  - VISION BLURRED [None]
  - WEIGHT INCREASED [None]
